FAERS Safety Report 6202501-2 (Version None)
Quarter: 2009Q2

REPORT INFORMATION
  Report Type: 
  Country: None (occurrence: None)
  Receive Date: 20090526
  Receipt Date: 20090515
  Transmission Date: 20091009
  Serious: Yes (Other)
  Sender: FDA-Public Use
  Company Number: US-JNJCH-2009014175

PATIENT
  Age: 63 Year
  Sex: Female
  Weight: 78.5 kg

DRUGS (4)
  1. ZYRTEC [Suspect]
     Indication: HYPERSENSITIVITY
     Dosage: TEXT:1 TABLET DAILY
     Route: 048
  2. EXTRA STRENGTH TYLENOL [Suspect]
     Indication: PYREXIA
     Dosage: TEXT:12 THROUGHOUT A DAY
     Route: 048
     Dates: start: 20090513, end: 20090514
  3. WARFARIN SODIUM [Concomitant]
     Indication: BLOOD PRESSURE
     Dosage: TEXT:UNSPECIFIED
     Route: 065
  4. ALLERGY MEDICATION [Concomitant]
     Indication: DRUG USE FOR UNKNOWN INDICATION
     Dosage: TEXT:UNSPECIFIED
     Route: 065

REACTIONS (3)
  - INFECTION [None]
  - INSOMNIA [None]
  - PYREXIA [None]
